FAERS Safety Report 12691497 (Version 4)
Quarter: 2017Q1

REPORT INFORMATION
  Report Type: Spontaneous
  Country: US (occurrence: US)
  Receive Date: 20160826
  Receipt Date: 20170217
  Transmission Date: 20170428
  Serious: No
  Sender: FDA-Public Use
  Company Number: US-ACTELION-A-US2016-138165

PATIENT
  Age: 69 Year
  Sex: Female

DRUGS (3)
  1. REVATIO [Concomitant]
     Active Substance: SILDENAFIL CITRATE
  2. VELETRI [Suspect]
     Active Substance: EPOPROSTENOL
     Indication: PULMONARY HYPERTENSION
     Dosage: 12 NG/KG, PER MIN
     Route: 042
     Dates: start: 20160613
  3. VELETRI [Suspect]
     Active Substance: EPOPROSTENOL
     Dosage: 10 NG/KG, PER MIN
     Route: 042
     Dates: start: 20160613

REACTIONS (13)
  - Diarrhoea [Unknown]
  - Retching [Unknown]
  - Myalgia [Unknown]
  - Arthralgia [Unknown]
  - Pain in jaw [Unknown]
  - Back pain [Unknown]
  - Dyspnoea exertional [Unknown]
  - Nausea [Recovered/Resolved]
  - Headache [Unknown]
  - Anxiety [Unknown]
  - Asthenia [Unknown]
  - Vitamin B12 decreased [Unknown]
  - Malaise [Unknown]
